FAERS Safety Report 10305672 (Version 1)
Quarter: 2014Q3

REPORT INFORMATION
  Report Type: Spontaneous
  Country: US (occurrence: None)
  Receive Date: 20140714
  Receipt Date: 20140714
  Transmission Date: 20150326
  Serious: No
  Sender: FDA-Public Use
  Company Number: None

PATIENT
  Age: 06 Year
  Sex: Female

DRUGS (1)
  1. ZOLOFT [Suspect]
     Active Substance: SERTRALINE HYDROCHLORIDE
     Route: 048
     Dates: start: 20140510, end: 20140709

REACTIONS (3)
  - Overdose [None]
  - Product dropper issue [None]
  - Incorrect dose administered [None]

NARRATIVE: CASE EVENT DATE: 20140709
